FAERS Safety Report 7048268-X (Version None)
Quarter: 2010Q4

REPORT INFORMATION
  Report Type: 
  Country: None (occurrence: None)
  Receive Date: 20101014
  Receipt Date: 20101014
  Transmission Date: 20110411
  Serious: Yes (Other)
  Sender: FDA-Public Use
  Company Number: None

PATIENT
  Age: 22 Year
  Sex: Female
  Weight: 56.6996 kg

DRUGS (1)
  1. ORTHO TRI-CYCLEN LO VARIES PER WEEK ORTHO MCNEIL [Suspect]
     Indication: CONTRACEPTION
     Dosage: 1X DAILY PO
     Route: 048

REACTIONS (3)
  - DIARRHOEA [None]
  - LACTOSE INTOLERANCE [None]
  - MUSCLE SPASMS [None]
